FAERS Safety Report 5199331-X (Version None)
Quarter: 2006Q4

REPORT INFORMATION
  Report Type: 
  Country: None (occurrence: None)
  Receive Date: 20061016
  Receipt Date: 20060619
  Transmission Date: 20070319
  Serious: No
  Sender: FDA-Public Use
  Company Number: 2006SP002461

PATIENT
  Age: 63 Year
  Sex: Male
  Weight: 65.318 kg

DRUGS (5)
  1. LUNESTA [Suspect]
     Indication: INSOMNIA
     Dosage: SEE IMAGE
     Route: 048
     Dates: start: 20050101
  2. NEXIUM [Concomitant]
  3. ATORVASTATIN CALCIUM [Concomitant]
  4. SYNTHROID [Concomitant]
  5. AMBIEN [Concomitant]

REACTIONS (3)
  - DRUG EFFECT DECREASED [None]
  - INSOMNIA [None]
  - SOMNOLENCE [None]
